FAERS Safety Report 24928914 (Version 1)
Quarter: 2025Q1

REPORT INFORMATION
  Report Type: Spontaneous
  Country: US (occurrence: US)
  Receive Date: 20250205
  Receipt Date: 20250205
  Transmission Date: 20250408
  Serious: No
  Sender: pharmaAND
  Company Number: US-CLOVIS ONCOLOGY-CLO-2022-001374

PATIENT
  Age: 74 Year
  Sex: Female

DRUGS (13)
  1. RUBRACA [Suspect]
     Active Substance: RUCAPARIB CAMSYLATE
     Indication: Ovarian cancer
     Dates: start: 20181228
  2. RUBRACA [Suspect]
     Active Substance: RUCAPARIB CAMSYLATE
     Indication: Malignant peritoneal neoplasm
     Dosage: 250 MILLIGRAM, BID
     Route: 048
     Dates: start: 201901, end: 20240317
  3. ONDANSETRON [Concomitant]
     Active Substance: ONDANSETRON
  4. POTASSIUM [Concomitant]
     Active Substance: POTASSIUM
  5. Chondrotin [Concomitant]
  6. VITAMIN B12 [Concomitant]
     Active Substance: CYANOCOBALAMIN
  7. GLUCOSAMINE [Concomitant]
     Active Substance: GLUCOSAMINE
  8. CEFDINIR [Concomitant]
     Active Substance: CEFDINIR
  9. CALCIUM\VITAMIN D [Concomitant]
     Active Substance: CALCIUM\VITAMIN D
  10. DICLOFENAC [Concomitant]
     Active Substance: DICLOFENAC
  11. FLONASE [Concomitant]
     Active Substance: FLUTICASONE PROPIONATE
  12. FLAXSEED [Concomitant]
     Active Substance: FLAX SEED
  13. unspecified vitamins and supplements [Concomitant]

REACTIONS (10)
  - Gait disturbance [Unknown]
  - Disturbance in attention [Recovering/Resolving]
  - Haemoglobin decreased [Recovering/Resolving]
  - Fatigue [Recovering/Resolving]
  - Arthritis [Unknown]
  - Neuropathy peripheral [Unknown]
  - Mobility decreased [Unknown]
  - Pain [Unknown]
  - Cataract [Unknown]
  - Therapeutic response unexpected [Unknown]

NARRATIVE: CASE EVENT DATE: 20220303
